FAERS Safety Report 16132292 (Version 3)
Quarter: 2019Q2

REPORT INFORMATION
  Report Type: Report from Study
  Country: FR (occurrence: FR)
  Receive Date: 20190329
  Receipt Date: 20190617
  Transmission Date: 20190711
  Serious: Yes (Hospitalization, Other)
  Sender: FDA-Public Use
  Company Number: FR-BRISTOL-MYERS SQUIBB COMPANY-BMS-2019-028852

PATIENT
  Age: 84 Year
  Sex: Male

DRUGS (1)
  1. NIVOLUMAB [Suspect]
     Active Substance: NIVOLUMAB
     Indication: RENAL CANCER METASTATIC
     Dosage: 480 MILLIGRAM EVERY 28 DAYS
     Route: 065
     Dates: start: 20181203, end: 20190225

REACTIONS (8)
  - Pulmonary sepsis [Unknown]
  - Renal tubular necrosis [Unknown]
  - Thrombosis [Recovered/Resolved]
  - Dysgeusia [Recovering/Resolving]
  - Pyrexia [Unknown]
  - Acute kidney injury [Recovering/Resolving]
  - Tumour associated fever [Recovered/Resolved]
  - Macular oedema [Recovered/Resolved]

NARRATIVE: CASE EVENT DATE: 20190207
